FAERS Safety Report 11817828 (Version 2)
Quarter: 2019Q2

REPORT INFORMATION
  Report Type: Spontaneous
  Country: US (occurrence: US)
  Receive Date: 20151210
  Receipt Date: 20190614
  Transmission Date: 20190711
  Serious: No
  Sender: FDA-Public Use
  Company Number: US-JNJFOC-20151109937

PATIENT
  Age: 9 Year
  Sex: Male

DRUGS (13)
  1. RISPERDAL [Suspect]
     Active Substance: RISPERIDONE
     Indication: AGGRESSION
     Route: 048
     Dates: start: 201108, end: 201207
  2. RISPERDAL [Suspect]
     Active Substance: RISPERIDONE
     Indication: ATTENTION DEFICIT/HYPERACTIVITY DISORDER
     Route: 048
     Dates: start: 201208, end: 201302
  3. RISPERDAL [Suspect]
     Active Substance: RISPERIDONE
     Indication: AGGRESSION
     Route: 048
     Dates: start: 201208, end: 201302
  4. RISPERDAL [Suspect]
     Active Substance: RISPERIDONE
     Indication: ATTENTION DEFICIT/HYPERACTIVITY DISORDER
     Route: 048
     Dates: start: 201401, end: 201408
  5. RISPERDAL [Suspect]
     Active Substance: RISPERIDONE
     Indication: AUTISM SPECTRUM DISORDER
     Route: 048
     Dates: start: 201303, end: 201312
  6. RISPERDAL [Suspect]
     Active Substance: RISPERIDONE
     Indication: AUTISM SPECTRUM DISORDER
     Route: 048
     Dates: start: 201108, end: 201207
  7. RISPERDAL [Suspect]
     Active Substance: RISPERIDONE
     Indication: AGGRESSION
     Route: 048
     Dates: start: 201303, end: 201312
  8. RISPERDAL [Suspect]
     Active Substance: RISPERIDONE
     Indication: ATTENTION DEFICIT/HYPERACTIVITY DISORDER
     Route: 048
     Dates: start: 201108, end: 201207
  9. RISPERDAL [Suspect]
     Active Substance: RISPERIDONE
     Indication: AUTISM SPECTRUM DISORDER
     Route: 048
     Dates: start: 201401, end: 201408
  10. RISPERDAL [Suspect]
     Active Substance: RISPERIDONE
     Indication: AUTISM SPECTRUM DISORDER
     Route: 048
     Dates: start: 201208, end: 201302
  11. RISPERDAL [Suspect]
     Active Substance: RISPERIDONE
     Indication: ATTENTION DEFICIT/HYPERACTIVITY DISORDER
     Route: 048
     Dates: start: 201303, end: 201312
  12. RISPERIDONE. [Suspect]
     Active Substance: RISPERIDONE
     Indication: PRODUCT USED FOR UNKNOWN INDICATION
     Route: 065
  13. RISPERDAL [Suspect]
     Active Substance: RISPERIDONE
     Indication: AGGRESSION
     Route: 048
     Dates: start: 201401, end: 201408

REACTIONS (2)
  - Blood prolactin increased [Unknown]
  - Gynaecomastia [Unknown]

NARRATIVE: CASE EVENT DATE: 201406
